FAERS Safety Report 14852004 (Version 3)
Quarter: 2019Q1

REPORT INFORMATION
  Report Type: Spontaneous
  Country: ES (occurrence: ES)
  Receive Date: 20180507
  Receipt Date: 20190211
  Transmission Date: 20190417
  Serious: Yes (Death, Life-Threatening, Hospitalization, Other)
  Sender: FDA-Public Use
  Company Number: ES-ACCORD-066578

PATIENT
  Age: 73 Year
  Sex: Female
  Weight: 75 kg

DRUGS (8)
  1. LEVOFLOXACIN/LEVOFLOXACIN MESYLATE [Concomitant]
     Route: 048
     Dates: start: 20170920, end: 20171017
  2. NYSTATIN/NYSTATIN/LIPOSOME [Concomitant]
     Dosage: DOSE: 1 (UNIT UNSPECIFIED) EVERY 8 HOURS
     Route: 048
  3. ALLOPURINOL. [Concomitant]
     Active Substance: ALLOPURINOL
     Route: 048
  4. ENALAPRIL [Concomitant]
     Active Substance: ENALAPRIL
     Route: 048
  5. BENDAMUSTINE/BENDAMUSTINE HYDROCHLORIDE [Suspect]
     Active Substance: BENDAMUSTINE HYDROCHLORIDE
     Indication: PRODUCT USED FOR UNKNOWN INDICATION
     Route: 042
     Dates: start: 20170116, end: 20171017
  6. IBRUTINIB [Suspect]
     Active Substance: IBRUTINIB
     Indication: CHRONIC LYMPHOCYTIC LEUKAEMIA
     Dosage: DOSE: 1 (UNIT UNSPECIFIED), ONCE DAILY
     Route: 048
     Dates: start: 20171006, end: 20171016
  7. PREDNISONE. [Concomitant]
     Active Substance: PREDNISONE
     Dosage: ALSO RECEIVED AT DOSE OF 60 MG DAILY FROM 27-SEP-2017 TO 16-OCT-2017
     Route: 048
     Dates: start: 20171016, end: 20171017
  8. ATORVASTATIN [Concomitant]
     Active Substance: ATORVASTATIN
     Route: 048

REACTIONS (10)
  - Aspergillus infection [Unknown]
  - Bronchopulmonary aspergillosis [Unknown]
  - General physical health deterioration [None]
  - Neurological decompensation [Unknown]
  - Acute respiratory failure [Fatal]
  - Thalamic infarction [Unknown]
  - Septic shock [Fatal]
  - Pseudomonas infection [Unknown]
  - Neutropenia [Unknown]
  - Cytopenia [Unknown]

NARRATIVE: CASE EVENT DATE: 20170920
